FAERS Safety Report 10907986 (Version 1)
Quarter: 2015Q1

REPORT INFORMATION
  Report Type: Spontaneous
  Country: US (occurrence: US)
  Receive Date: 20150312
  Receipt Date: 20150312
  Transmission Date: 20150721
  Serious: No
  Sender: FDA-Public Use
  Company Number: US-INCYTE CORPORATION-2014IN003844

PATIENT
  Age: 64 Year
  Sex: Male
  Weight: 87.54 kg

DRUGS (12)
  1. ASPIRIN. [Concomitant]
     Active Substance: ASPIRIN
  2. TAMSULOSIN [Concomitant]
     Active Substance: TAMSULOSIN
  3. ULORIC [Concomitant]
     Active Substance: FEBUXOSTAT
  4. METFORMIN [Concomitant]
     Active Substance: METFORMIN HYDROCHLORIDE
  5. JAKAFI [Suspect]
     Active Substance: RUXOLITINIB
     Indication: MYELOFIBROSIS
     Dosage: 10 MG, BID
     Route: 048
     Dates: start: 20141114
  6. METOPROLOL [Concomitant]
     Active Substance: METOPROLOL
  7. COLCRYS [Concomitant]
     Active Substance: COLCHICINE
  8. GABAPENTIN. [Concomitant]
     Active Substance: GABAPENTIN
  9. PROTONIX [Concomitant]
     Active Substance: PANTOPRAZOLE SODIUM
  10. ELIQUIS [Concomitant]
     Active Substance: APIXABAN
  11. MULTAQ [Concomitant]
     Active Substance: DRONEDARONE
  12. FINASTERIDE. [Concomitant]
     Active Substance: FINASTERIDE

REACTIONS (1)
  - Gout [Unknown]

NARRATIVE: CASE EVENT DATE: 20141210
